FAERS Safety Report 9155552 (Version 2)
Quarter: 2013Q3

REPORT INFORMATION
  Report Type: Spontaneous
  Country: CA (occurrence: CA)
  Receive Date: 20130311
  Receipt Date: 20130809
  Transmission Date: 20140515
  Serious: Yes (Death, Hospitalization)
  Sender: FDA-Public Use
  Company Number: CA-GLAXOSMITHKLINE-A1014816A

PATIENT
  Sex: Female
  Weight: 62 kg

DRUGS (7)
  1. FLOLAN [Suspect]
     Indication: PULMONARY HYPERTENSION
     Route: 042
     Dates: start: 20121229
  2. FLOLAN DILUENT [Suspect]
     Indication: PULMONARY HYPERTENSION
     Route: 042
     Dates: start: 20121229
  3. BOSENTAN [Concomitant]
  4. DOBUTAMINE [Concomitant]
  5. SILDENAFIL [Concomitant]
  6. LASIX [Concomitant]
  7. METOLAZONE [Concomitant]

REACTIONS (12)
  - Multi-organ failure [Fatal]
  - Right ventricular failure [Fatal]
  - Obstructive airways disorder [Unknown]
  - Renal impairment [Unknown]
  - Chest pain [Unknown]
  - Blood creatinine increased [Unknown]
  - Anuria [Unknown]
  - Respiratory disorder [Unknown]
  - Haemodynamic instability [Unknown]
  - Chest tube insertion [Unknown]
  - Paracentesis [Unknown]
  - Aspiration pleural cavity [Unknown]
